FAERS Safety Report 10885645 (Version 1)
Quarter: 2015Q1

REPORT INFORMATION
  Report Type: Spontaneous
  Country: US (occurrence: None)
  Receive Date: 20150227
  Receipt Date: 20150227
  Transmission Date: 20150721
  Serious: Yes (Life-Threatening)
  Sender: FDA-Public Use
  Company Number: FK201500904

PATIENT
  Age: 18 Year
  Sex: Female
  Weight: 53 kg

DRUGS (4)
  1. MORPHINE (MANUFACTURER UNKNOWN) (MORPHINE) (MORPHINE) [Suspect]
     Active Substance: MORPHINE
     Indication: OSTEOTOMY
  2. FENTANYL (FENTANYL) [Suspect]
     Active Substance: FENTANYL
     Indication: OSTEOTOMY
  3. PROPOFOL (MANUFACTURER UNKNOWN) (PROPOFOL) (PROPOFOL) [Suspect]
     Active Substance: PROPOFOL
     Indication: OSTEOTOMY
  4. MIDAZOLAM [Suspect]
     Active Substance: MIDAZOLAM\MIDAZOLAM HYDROCHLORIDE
     Indication: OSTEOTOMY

REACTIONS (2)
  - Airway complication of anaesthesia [None]
  - Apnoea [None]
